FAERS Safety Report 21474487 (Version 4)
Quarter: 2023Q2

REPORT INFORMATION
  Report Type: Report from Study
  Country: US (occurrence: US)
  Receive Date: 20221018
  Receipt Date: 20230411
  Transmission Date: 20230722
  Serious: Yes (Death, Other)
  Sender: FDA-Public Use
  Company Number: US-BIOMARINAP-US-2022-146264

PATIENT

DRUGS (51)
  1. BRINEURA [Suspect]
     Active Substance: CERLIPONASE ALFA
     Indication: Neuronal ceroid lipofuscinosis
     Dosage: 300 MILLIGRAM, QOW
     Route: 020
     Dates: start: 20180726, end: 20220901
  2. LANSOPRAZOLE [Concomitant]
     Active Substance: LANSOPRAZOLE
     Indication: Product used for unknown indication
     Dosage: ~~~
     Dates: start: 20220909, end: 20221009
  3. LANSOPRAZOLE [Concomitant]
     Active Substance: LANSOPRAZOLE
     Dosage: ~~~
     Dates: start: 20190912, end: 20220908
  4. LEVETIRACETAM [Concomitant]
     Active Substance: LEVETIRACETAM
     Indication: Seizure
     Dosage: ~~~
     Dates: start: 20190103
  5. DEPAKOTE [Concomitant]
     Active Substance: DIVALPROEX SODIUM
     Indication: Seizure
     Dosage: ~~~
     Dates: start: 20180325
  6. DEPAKOTE [Concomitant]
     Active Substance: DIVALPROEX SODIUM
     Dosage: ~~~
     Dates: start: 20190103
  7. ZONEGRAN [Concomitant]
     Active Substance: ZONISAMIDE
     Indication: Seizure
     Dosage: ~~~
     Dates: start: 20190103
  8. CALCIUM CARBONATE [Concomitant]
     Active Substance: CALCIUM CARBONATE
     Indication: Hypocalcaemia
     Dosage: ~~~
     Dates: start: 20220910, end: 20221011
  9. CALCIUM CARBONATE [Concomitant]
     Active Substance: CALCIUM CARBONATE
     Dosage: ~~~
     Dates: start: 20191125, end: 20220908
  10. CHLORHEXIDINE [Concomitant]
     Active Substance: CHLORHEXIDINE
     Indication: Premedication
     Dosage: ~~~
     Dates: start: 20180717, end: 20220901
  11. CLOBAZAM [Concomitant]
     Active Substance: CLOBAZAM
     Indication: Seizure
     Dosage: ~~~
     Dates: start: 20220911, end: 20221110
  12. CLOBAZAM [Concomitant]
     Active Substance: CLOBAZAM
     Dosage: ~~~
     Dates: start: 20220909, end: 20221009
  13. CLOBAZAM [Concomitant]
     Active Substance: CLOBAZAM
     Dosage: ~~~
     Dates: start: 20220908, end: 20221108
  14. CLOBAZAM [Concomitant]
     Active Substance: CLOBAZAM
     Dosage: ~~~
     Dates: start: 20220609, end: 20221206
  15. CLONAZEPAM [Concomitant]
     Active Substance: CLONAZEPAM
     Indication: Seizure
     Dosage: ~~~
     Dates: start: 20220909, end: 20221012
  16. CLONAZEPAM [Concomitant]
     Active Substance: CLONAZEPAM
     Indication: Seizure
     Dosage: ~~~
     Dates: start: 20220908, end: 20220908
  17. CLONAZEPAM [Concomitant]
     Active Substance: CLONAZEPAM
     Dosage: ~~~
     Dates: start: 20220908, end: 20220908
  18. CLONAZEPAM [Concomitant]
     Active Substance: CLONAZEPAM
     Dosage: ~~~
     Dates: start: 20220911, end: 20220913
  19. CLONAZEPAM [Concomitant]
     Active Substance: CLONAZEPAM
     Dosage: ~~~
     Dates: start: 20220906, end: 20221129
  20. CLONAZEPAM [Concomitant]
     Active Substance: CLONAZEPAM
     Dosage: ~~~
     Dates: start: 20220911
  21. CLONAZEPAM [Concomitant]
     Active Substance: CLONAZEPAM
     Dosage: ~~~
     Dates: start: 20220523, end: 20220911
  22. CLONIDINE [Concomitant]
     Active Substance: CLONIDINE
     Indication: Product used for unknown indication
     Dosage: ~~~
     Dates: start: 20220909
  23. CLONIDINE [Concomitant]
     Active Substance: CLONIDINE
     Dosage: ~~~
     Dates: start: 20220908, end: 20220908
  24. CLONIDINE [Concomitant]
     Active Substance: CLONIDINE
     Dosage: ~~~
     Dates: start: 20191017, end: 2022
  25. DIAZEPAM [Concomitant]
     Active Substance: DIAZEPAM
     Indication: Seizure
     Dosage: ~~~
     Dates: start: 20220208, end: 2022
  26. DIAZEPAM [Concomitant]
     Active Substance: DIAZEPAM
     Indication: Seizure
     Dosage: ~~~
     Dates: start: 20220106, end: 2022
  27. DIAZEPAM [Concomitant]
     Active Substance: DIAZEPAM
     Dosage: ~~~
     Dates: start: 20211209, end: 2021
  28. DIAZEPAM [Concomitant]
     Active Substance: DIAZEPAM
     Dosage: ~~~
     Dates: start: 20211028, end: 2021
  29. DIAZEPAM [Concomitant]
     Active Substance: DIAZEPAM
     Dosage: ~~~
     Dates: start: 20210805, end: 2021
  30. DIAZEPAM [Concomitant]
     Active Substance: DIAZEPAM
     Dosage: ~~~
     Dates: start: 20210415, end: 2021
  31. DIAZEPAM [Concomitant]
     Active Substance: DIAZEPAM
     Dosage: ~~~
     Dates: start: 20210107, end: 2021
  32. DIAZEPAM [Concomitant]
     Active Substance: DIAZEPAM
     Dosage: ~~~
     Dates: start: 20201224, end: 2020
  33. DIAZEPAM [Concomitant]
     Active Substance: DIAZEPAM
     Dosage: ~~~
     Dates: start: 20201015, end: 2020
  34. DIAZEPAM [Concomitant]
     Active Substance: DIAZEPAM
     Dosage: ~~~
     Dates: start: 20200319, end: 2020
  35. DIAZEPAM [Concomitant]
     Active Substance: DIAZEPAM
     Dosage: ~~~
     Dates: start: 20200206, end: 2020
  36. DIAZEPAM [Concomitant]
     Active Substance: DIAZEPAM
     Dosage: ~~~
     Dates: start: 20191212, end: 2019
  37. DIAZEPAM [Concomitant]
     Active Substance: DIAZEPAM
     Dosage: ~~~
     Dates: start: 20220911
  38. DIAZEPAM [Concomitant]
     Active Substance: DIAZEPAM
     Dosage: ~~~
     Dates: start: 20220906, end: 20220911
  39. DIAZEPAM [Concomitant]
     Active Substance: DIAZEPAM
     Dosage: ~~~
     Dates: start: 20220119, end: 20220906
  40. DIAZEPAM [Concomitant]
     Active Substance: DIAZEPAM
     Dosage: ~~~
     Dates: start: 20180308, end: 20220911
  41. DIAZEPAM [Concomitant]
     Active Substance: DIAZEPAM
     Dosage: ~~~
     Dates: start: 20220929
  42. DIAZEPAM [Concomitant]
     Active Substance: DIAZEPAM
     Dosage: ~~~
     Dates: start: 20220318, end: 20220929
  43. DIAZEPAM [Concomitant]
     Active Substance: DIAZEPAM
     Dosage: ~~~
     Dates: start: 20220909, end: 20220912
  44. DIAZEPAM [Concomitant]
     Active Substance: DIAZEPAM
     Dosage: ~~~
     Dates: start: 20220908, end: 20220908
  45. DIAZEPAM [Concomitant]
     Active Substance: DIAZEPAM
     Dosage: ~~~
     Dates: start: 20220908, end: 20220908
  46. ACETAMINOPHEN [Concomitant]
     Active Substance: ACETAMINOPHEN
     Indication: Pain
     Dosage: ~~~
     Dates: start: 20220929
  47. ACETAMINOPHEN [Concomitant]
     Active Substance: ACETAMINOPHEN
     Indication: Pyrexia
     Dosage: ~~~
     Dates: start: 20180717
  48. DIPHENHYDRAMINE [Concomitant]
     Active Substance: DIPHENHYDRAMINE
     Indication: Anaphylactic reaction
     Dosage: ~~~
     Dates: start: 20220318, end: 20220901
  49. DIPHENHYDRAMINE [Concomitant]
     Active Substance: DIPHENHYDRAMINE
     Indication: Premedication
  50. FOSPHENYTOIN [Concomitant]
     Active Substance: FOSPHENYTOIN
     Indication: Seizure
     Dosage: ~~~
     Dates: start: 20220909, end: 20221009
  51. IBUPROFEN [Concomitant]
     Active Substance: IBUPROFEN
     Indication: Pain
     Dosage: ~~~
     Dates: start: 20190105

REACTIONS (1)
  - Disease progression [Fatal]

NARRATIVE: CASE EVENT DATE: 20221002
